FAERS Safety Report 20920942 (Version 4)
Quarter: 2023Q1

REPORT INFORMATION
  Report Type: Spontaneous
  Country: CA (occurrence: CA)
  Receive Date: 20220606
  Receipt Date: 20230112
  Transmission Date: 20230418
  Serious: Yes (Hospitalization, Other)
  Sender: FDA-Public Use
  Company Number: CA-PFIZER INC-202101082040

PATIENT
  Age: 63 Year
  Sex: Male
  Weight: 92.5 kg

DRUGS (18)
  1. RUXIENCE [Suspect]
     Active Substance: RITUXIMAB-PVVR
     Indication: Rheumatoid arthritis
     Dosage: 1000 MG, DAY 1 AND DAY 15
     Route: 042
     Dates: start: 20210813, end: 20210813
  2. RUXIENCE [Suspect]
     Active Substance: RITUXIMAB-PVVR
     Dosage: 1000 MG, DAY 1 AND 15
     Route: 042
     Dates: start: 20220325, end: 20220616
  3. RUXIENCE [Suspect]
     Active Substance: RITUXIMAB-PVVR
     Dosage: 1000 MG, DAY 1 AND 15, NOT YET STARTED
     Route: 042
  4. CARVEDILOL [Concomitant]
     Active Substance: CARVEDILOL
     Dosage: 25 MG, 2X/DAY
     Route: 065
  5. HYDROCHLOROTHIAZIDE [Concomitant]
     Active Substance: HYDROCHLOROTHIAZIDE
     Dosage: 25 MG, 1X/DAY
     Route: 065
  6. HYDROXYCHLOROQUINE [Concomitant]
     Active Substance: HYDROXYCHLOROQUINE
     Dosage: 200 MG, 2X/DAY
     Route: 065
  7. JARDIANCE [Concomitant]
     Active Substance: EMPAGLIFLOZIN
     Dosage: 25 MG, DAILY
     Route: 065
  8. JARDIANCE [Concomitant]
     Active Substance: EMPAGLIFLOZIN
     Dosage: 25 MG, 1X/DAY
     Route: 065
  9. LEFLUNOMIDE [Concomitant]
     Active Substance: LEFLUNOMIDE
     Dosage: 10 MG, 2X/DAY
     Route: 065
  10. METHOTREXATE [Concomitant]
     Active Substance: METHOTREXATE
     Dosage: UNK
     Route: 065
  11. NOVORAPID [Concomitant]
     Active Substance: INSULIN ASPART
     Dosage: NOVORAPID FLEX TOUCH INJECTION PRIOR TO MEALS 18.0 UNITS
     Route: 065
  12. NOVORAPID [Concomitant]
     Active Substance: INSULIN ASPART
     Dosage: 1 DF, (NOVORAPID FLEX TOUCH INJECTION PRIOR TO MEALS 18.0 UNITS)
     Route: 065
  13. OZEMPIC [Concomitant]
     Active Substance: SEMAGLUTIDE
     Dosage: 1 DF, WEEKLY, UNKNOWN DOSE
     Route: 065
  14. PANTOPRAZOLE SODIUM [Concomitant]
     Active Substance: PANTOPRAZOLE SODIUM
     Dosage: 40 MG, DAILY
     Route: 065
  15. PANTOPRAZOLE SODIUM [Concomitant]
     Active Substance: PANTOPRAZOLE SODIUM
     Dosage: 40 MG, 1X/DAY
     Route: 065
  16. PREDNISONE [Concomitant]
     Active Substance: PREDNISONE
     Dosage: 10 MG UNKNOWN FREQUENCY
     Route: 065
  17. RAMIPRIL [Concomitant]
     Active Substance: RAMIPRIL
     Dosage: 10 MG, 2X/DAY
     Route: 065
  18. TRESIBA [Concomitant]
     Active Substance: INSULIN DEGLUDEC
     Dosage: 1 DF, 40 - 50 UNITS AT NIGHT
     Route: 065

REACTIONS (12)
  - Myocardial infarction [Recovered/Resolved]
  - Cellulitis [Recovered/Resolved]
  - Blood urine present [Unknown]
  - Cystitis [Not Recovered/Not Resolved]
  - Eye pruritus [Unknown]
  - Pruritus [Unknown]
  - Lower respiratory tract infection [Unknown]
  - COVID-19 [Not Recovered/Not Resolved]
  - Ear infection [Not Recovered/Not Resolved]
  - Rash [Not Recovered/Not Resolved]
  - Peripheral swelling [Not Recovered/Not Resolved]
  - Off label use [Unknown]

NARRATIVE: CASE EVENT DATE: 20210814
